FAERS Safety Report 5787356-2 (Version None)
Quarter: 2008Q2

REPORT INFORMATION
  Report Type: 
  Country: None (occurrence: None)
  Receive Date: 20080625
  Receipt Date: 20080617
  Transmission Date: 20081010
  Serious: Yes (Other)
  Sender: FDA-Public Use
  Company Number: CA-ABBOTT-08P-028-0458616-00

PATIENT
  Sex: Female

DRUGS (4)
  1. CALCIJEX [Suspect]
     Indication: VITAMIN D DECREASED
     Route: 050
     Dates: start: 20080529
  2. METFORMIN HCL [Concomitant]
     Indication: DIABETES MELLITUS
     Route: 048
  3. PIOGLITAZONE [Concomitant]
     Indication: DIABETES MELLITUS
     Route: 048
  4. RAMIPRIL [Concomitant]
     Indication: DRUG USE FOR UNKNOWN INDICATION
     Route: 048

REACTIONS (6)
  - CHILLS [None]
  - CONVULSION [None]
  - ENERGY INCREASED [None]
  - ERYTHEMA [None]
  - HYPERTENSION [None]
  - SENSORY DISTURBANCE [None]
